FAERS Safety Report 7540747-1 (Version None)
Quarter: 2011Q2

REPORT INFORMATION
  Report Type: 
  Country: None (occurrence: None)
  Receive Date: 20110610
  Receipt Date: 20110602
  Transmission Date: 20111010
  Serious: Yes (Other)
  Sender: FDA-Public Use
  Company Number: AU-ROCHE-780581

PATIENT
  Age: 61 Year
  Sex: Female

DRUGS (3)
  1. TAXANES [Suspect]
     Route: 065
     Dates: start: 20090101
  2. HERCEPTIN [Suspect]
     Route: 065
     Dates: start: 20090101
  3. AVASTIN [Suspect]
     Route: 065
     Dates: start: 20090101

REACTIONS (1)
  - DISEASE PROGRESSION [None]
